FAERS Safety Report 10425451 (Version 1)
Quarter: 2014Q3

REPORT INFORMATION
  Report Type: Spontaneous
  Country: US (occurrence: None)
  Receive Date: 20140725
  Receipt Date: 20140725
  Transmission Date: 20150326
  Serious: No
  Sender: FDA-Public Use
  Company Number: AP356-00694-SPO-US

PATIENT
  Sex: Female

DRUGS (3)
  1. THRYOID MEDICATION (THYROID) [Concomitant]
  2. BIRTH CONTROL (ORAL CONTRACEPTIVE NOS) [Concomitant]
  3. BELVIQ [Suspect]
     Active Substance: LORCASERIN HYDROCHLORIDE
     Indication: WEIGHT DECREASED
     Route: 048

REACTIONS (1)
  - Chest pain [None]
